FAERS Safety Report 8326854-4 (Version None)
Quarter: 2012Q2

REPORT INFORMATION
  Report Type: 
  Country: None (occurrence: None)
  Receive Date: 20120501
  Receipt Date: 20120424
  Transmission Date: 20120825
  Serious: Yes (Other)
  Sender: FDA-Public Use
  Company Number: BR-PFIZER INC-2012102134

PATIENT
  Age: 68 Year
  Sex: Male

DRUGS (2)
  1. XALATAN [Suspect]
     Indication: CATARACT
  2. XALATAN [Suspect]
     Indication: GLAUCOMA
     Dosage: 3 UG, 1X/DAY (1 DROP EACH EYE, 1X/DAY)
     Route: 047

REACTIONS (3)
  - INTRAOCULAR PRESSURE INCREASED [None]
  - CATARACT [None]
  - GLAUCOMA [None]
